FAERS Safety Report 23589647 (Version 1)
Quarter: 2024Q1

REPORT INFORMATION
  Report Type: Spontaneous
  Country: TW (occurrence: TW)
  Receive Date: 20240304
  Receipt Date: 20240304
  Transmission Date: 20240410
  Serious: Yes (Hospitalization)
  Sender: FDA-Public Use
  Company Number: TW-AMGEN-TWNSP2024040084

PATIENT
  Age: 79 Year
  Sex: Female

DRUGS (11)
  1. PROLIA [Suspect]
     Active Substance: DENOSUMAB
     Indication: Osteoporotic fracture
     Dosage: UNK
     Route: 065
  2. PROLIA [Suspect]
     Active Substance: DENOSUMAB
     Indication: Spinal compression fracture
  3. BACLOFEN [Concomitant]
     Active Substance: BACLOFEN
     Dosage: 10 MILLIGRAM/TABLET, BID (1 TABLET)
     Route: 065
  4. MONTELUKAST [Concomitant]
     Active Substance: MONTELUKAST SODIUM
     Dosage: 10 MILLIGRAM/TABLET, QD (1 TABLET)
     Route: 065
  5. TIOTROPIUM BROMIDE [Concomitant]
     Active Substance: TIOTROPIUM BROMIDE
     Dosage: 2.5 MICROGRAM/PUFF, QD (1 PUFF)
     Route: 065
  6. ACETAMINOPHEN\TRAMADOL [Concomitant]
     Active Substance: ACETAMINOPHEN\TRAMADOL
     Dosage: 37.5/BR5MG/TABLET (1 TABLET QD PRN)
     Route: 065
  7. ETORICOXIB [Concomitant]
     Active Substance: ETORICOXIB
     Dosage: 60 MILLIGRAM/TABLET, QD (1 TABLET PRN)
     Route: 065
  8. CLONAZEPAM [Concomitant]
     Active Substance: CLONAZEPAM
     Dosage: 0.5 MILLIGRAM/TABLET (1 TABLET HS)
     Route: 065
  9. PROPRANOLOL HYDROCHLORIDE [Concomitant]
     Active Substance: PROPRANOLOL HYDROCHLORIDE
     Dosage: 10 MILLIGRAM/TABLET, QD (1 TABLET)
     Route: 065
  10. NICAMETATE [Concomitant]
     Active Substance: NICAMETATE
     Dosage: 50 MILLIGRAM/TABLET, TID (1 TABLET)
     Route: 065
  11. BETAHISTINE [Concomitant]
     Active Substance: BETAHISTINE
     Dosage: 12 MILLIGRAM/TABLET, TID (1 TABLET)
     Route: 065

REACTIONS (4)
  - Dropped head syndrome [Recovering/Resolving]
  - Polymyositis [Recovering/Resolving]
  - Lung neoplasm [Unknown]
  - Anal incontinence [Unknown]
